FAERS Safety Report 7250042-6 (Version None)
Quarter: 2011Q1

REPORT INFORMATION
  Report Type: 
  Country: None (occurrence: None)
  Receive Date: 20110128
  Receipt Date: 20101227
  Transmission Date: 20110831
  Serious: Yes (Other)
  Sender: FDA-Public Use
  Company Number: US-BAYER-200939910NA

PATIENT
  Sex: Female

DRUGS (1)
  1. YASMIN [Suspect]
     Indication: PRODUCT USED FOR UNKNOWN INDICATION
     Route: 048
     Dates: start: 20051001, end: 20061001

REACTIONS (7)
  - HYPOAESTHESIA FACIAL [None]
  - SPEECH DISORDER [None]
  - TRANSIENT ISCHAEMIC ATTACK [None]
  - FACIAL PARESIS [None]
  - SIMPLE PARTIAL SEIZURES [None]
  - MUSCULAR WEAKNESS [None]
  - CEREBROVASCULAR ACCIDENT [None]
